FAERS Safety Report 26090076 (Version 1)
Quarter: 2025Q4

REPORT INFORMATION
  Report Type: Spontaneous
  Country: US (occurrence: US)
  Receive Date: 20251126
  Receipt Date: 20251126
  Transmission Date: 20260118
  Serious: No
  Sender: BRISTOL-MYERS SQUIBB COMPANY
  Company Number: US-BRISTOL-MYERS SQUIBB COMPANY-2025-158448

PATIENT
  Age: 76 Year
  Sex: Female

DRUGS (5)
  1. ELIQUIS [Suspect]
     Active Substance: APIXABAN
     Indication: Product used for unknown indication
  2. TREPROSTINIL SODIUM [Suspect]
     Active Substance: TREPROSTINIL SODIUM
     Indication: Product used for unknown indication
  3. ASPIRIN [Suspect]
     Active Substance: ASPIRIN
     Indication: Product used for unknown indication
  4. PLAVIX [Suspect]
     Active Substance: CLOPIDOGREL BISULFATE
     Indication: Product used for unknown indication
  5. YUTREPIA [Suspect]
     Active Substance: TREPROSTINIL SODIUM
     Indication: Product used for unknown indication
     Dosage: VIA PLASTIAPE RS00 MODEL 8 SINGLE-DOSE DRY POWDER INHALER

REACTIONS (1)
  - Vaginal haemorrhage [Unknown]

NARRATIVE: CASE EVENT DATE: 20250101
